FAERS Safety Report 16197773 (Version 1)
Quarter: 2019Q2

REPORT INFORMATION
  Report Type: Report from Study
  Country: AU (occurrence: AU)
  Receive Date: 20190415
  Receipt Date: 20190415
  Transmission Date: 20190711
  Serious: Yes (Other)
  Sender: FDA-Public Use
  Company Number: AU-ROCHE-1836982

PATIENT
  Age: 70 Year
  Sex: Female

DRUGS (2)
  1. ACTEMRA [Suspect]
     Active Substance: TOCILIZUMAB
     Indication: RHEUMATOID ARTHRITIS
     Route: 042
     Dates: start: 20151007
  2. ACUTRIM [Concomitant]

REACTIONS (9)
  - Benign urinary tract neoplasm [Recovered/Resolved]
  - Gastrooesophageal reflux disease [Recovering/Resolving]
  - Supraventricular extrasystoles [Unknown]
  - Bradycardia [Not Recovered/Not Resolved]
  - Bradycardia [Unknown]
  - Rectocele [Unknown]
  - Stress urinary incontinence [Unknown]
  - Cystocele [Unknown]
  - Constipation [Not Recovered/Not Resolved]

NARRATIVE: CASE EVENT DATE: 201605
